FAERS Safety Report 24006772 (Version 1)
Quarter: 2024Q2

REPORT INFORMATION
  Report Type: Spontaneous
  Country: US (occurrence: US)
  Receive Date: 20240624
  Receipt Date: 20240624
  Transmission Date: 20240717
  Serious: Yes (Life-Threatening, Other)
  Sender: FDA-Public Use
  Company Number: US-ELI_LILLY_AND_COMPANY-US202406012861

PATIENT
  Age: 57 Year
  Sex: Female

DRUGS (1)
  1. HUMALOG [Suspect]
     Active Substance: INSULIN LISPRO
     Indication: Product used for unknown indication
     Dosage: UNK UNK, UNKNOWN
     Route: 065
     Dates: start: 2020

REACTIONS (8)
  - Diabetic coma [Unknown]
  - Pneumonia [Unknown]
  - Blood glucose increased [Unknown]
  - Illness [Unknown]
  - Retching [Unknown]
  - Asthenia [Unknown]
  - Bronchitis [Unknown]
  - Rash [Unknown]
